FAERS Safety Report 16054032 (Version 1)
Quarter: 2019Q1

REPORT INFORMATION
  Report Type: Spontaneous
  Country: JP (occurrence: JP)
  Receive Date: 20190308
  Receipt Date: 20190308
  Transmission Date: 20190418
  Serious: Yes (Other)
  Sender: FDA-Public Use
  Company Number: PHJP2019JP002772

PATIENT
  Sex: Male

DRUGS (1)
  1. RITALIN [Suspect]
     Active Substance: METHYLPHENIDATE HYDROCHLORIDE
     Indication: ATTENTION DEFICIT/HYPERACTIVITY DISORDER
     Dosage: UNK
     Route: 048

REACTIONS (7)
  - Aggression [Unknown]
  - Drug dependence [Unknown]
  - Feeling abnormal [Unknown]
  - Depressed mood [Unknown]
  - Belligerence [Unknown]
  - Personality change [Unknown]
  - Somnolence [Unknown]
